FAERS Safety Report 5733618-4 (Version None)
Quarter: 2008Q2

REPORT INFORMATION
  Report Type: 
  Country: None (occurrence: None)
  Receive Date: 20080509
  Receipt Date: 20080427
  Transmission Date: 20081010
  Serious: Yes (Other)
  Sender: FDA-Public Use
  Company Number: US-PFIZER INC-2008008801

PATIENT
  Sex: Female
  Weight: 85.3 kg

DRUGS (6)
  1. CHANTIX [Suspect]
     Indication: SMOKING CESSATION THERAPY
     Dates: start: 20080114, end: 20080401
  2. SEROQUEL [Concomitant]
     Dosage: DAILY DOSE:300MG
  3. LEVOTHYROXINE SODIUM [Concomitant]
  4. LEXAPRO [Concomitant]
  5. VALIUM [Concomitant]
  6. PERCOCET [Concomitant]

REACTIONS (3)
  - NECK PAIN [None]
  - OBSESSIVE-COMPULSIVE DISORDER [None]
  - VISUAL DISTURBANCE [None]
